FAERS Safety Report 5507541-4 (Version None)
Quarter: 2007Q4

REPORT INFORMATION
  Report Type: 
  Country: None (occurrence: None)
  Receive Date: 20071105
  Receipt Date: 20071105
  Transmission Date: 20080405
  Serious: Yes (Other)
  Sender: FDA-Public Use
  Company Number: None

PATIENT
  Age: 23 Year
  Sex: Female
  Weight: 84.369 kg

DRUGS (2)
  1. DIFLUCAN [Suspect]
     Indication: FUNGAL INFECTION
     Dosage: 200 MG   1 TAB-WEEK-1 TAB  PO
     Route: 048
     Dates: start: 20071023, end: 20071030
  2. DIFLUCAN [Suspect]
     Indication: FUNGAL INFECTION
     Dosage: 200 MG   1 TAB-WEEK-1 TAB  PO
     Route: 048
     Dates: start: 20071030, end: 20071105

REACTIONS (5)
  - BEDRIDDEN [None]
  - FAECES DISCOLOURED [None]
  - FATIGUE [None]
  - FLUSHING [None]
  - MOVEMENT DISORDER [None]
